FAERS Safety Report 12213271 (Version 1)
Quarter: 2016Q1

REPORT INFORMATION
  Report Type: Spontaneous
  Country: US (occurrence: None)
  Receive Date: 20160325
  Receipt Date: 20160325
  Transmission Date: 20160526
  Serious: Yes (Hospitalization)
  Sender: FDA-Public Use
  Company Number: None

PATIENT
  Age: 53 Year
  Sex: Female
  Weight: 55.3 kg

DRUGS (1)
  1. GEMCITABINE HYDROCHLORIDE. [Suspect]
     Active Substance: GEMCITABINE HYDROCHLORIDE
     Dates: end: 20160302

REACTIONS (5)
  - Ureterolithiasis [None]
  - Nausea [None]
  - Ureteric obstruction [None]
  - Flank pain [None]
  - Haematuria [None]

NARRATIVE: CASE EVENT DATE: 20160314
